FAERS Safety Report 7787212-4 (Version None)
Quarter: 2011Q3

REPORT INFORMATION
  Report Type: 
  Country: None (occurrence: None)
  Receive Date: 20110929
  Receipt Date: 20110921
  Transmission Date: 20111222
  Serious: Yes (Hospitalization)
  Sender: FDA-Public Use
  Company Number: BR-UCBSA-041858

PATIENT
  Sex: Female
  Weight: 79.5 kg

DRUGS (1)
  1. CERTOLIZUMAB PEGOL [Suspect]
     Indication: CROHN'S DISEASE
     Dosage: NBR. DOSES RECEIVED:28
     Route: 058
     Dates: start: 20090929, end: 20110920

REACTIONS (2)
  - URINARY TRACT INFECTION [None]
  - ANAEMIA [None]
